FAERS Safety Report 13042376 (Version 1)
Quarter: 2016Q4

REPORT INFORMATION
  Report Type: Report from Study
  Country: JP (occurrence: JP)
  Receive Date: 20161219
  Receipt Date: 20161219
  Transmission Date: 20170207
  Serious: Yes (Death, Disabling, Other)
  Sender: FDA-Public Use
  Company Number: JP-OTSUKA-2016_027021

PATIENT
  Age: 71 Year
  Sex: Male

DRUGS (12)
  1. FUROSEMIDE. [Suspect]
     Active Substance: FUROSEMIDE
     Indication: FLUID RETENTION
     Dosage: 40 MG, QD
     Route: 048
     Dates: end: 20160626
  2. DIART [Suspect]
     Active Substance: AZOSEMIDE
     Indication: FLUID RETENTION
     Dosage: 60 MG, QD
     Route: 048
     Dates: start: 20160418, end: 20160629
  3. ZOSYN [Concomitant]
     Active Substance: PIPERACILLIN SODIUM\TAZOBACTAM SODIUM
     Indication: PRODUCT USED FOR UNKNOWN INDICATION
     Dosage: 9 G, QD
     Route: 048
     Dates: start: 20160627, end: 20160629
  4. ALBUMIN [Concomitant]
     Active Substance: ALBUMIN HUMAN
     Indication: OEDEMA DUE TO HEPATIC DISEASE
     Dosage: 12.5 G, QD
     Route: 042
     Dates: start: 20160627, end: 20160629
  5. MIYA-BM [Concomitant]
     Active Substance: CLOSTRIDIUM BUTYRICUM SPORES STRAIN M-55
     Indication: PRODUCT USED FOR UNKNOWN INDICATION
     Dosage: 3 G, QD
     Route: 048
     Dates: end: 20160626
  6. SENNOSIDE [Concomitant]
     Active Substance: SENNOSIDES
     Indication: PRODUCT USED FOR UNKNOWN INDICATION
     Dosage: 24 MG, QD
     Route: 048
     Dates: end: 20160626
  7. NEXIUM [Concomitant]
     Active Substance: ESOMEPRAZOLE MAGNESIUM
     Indication: PRODUCT USED FOR UNKNOWN INDICATION
     Dosage: 20 MG, QD
     Route: 048
     Dates: end: 20160626
  8. SPIRONOLACTONE. [Concomitant]
     Active Substance: SPIRONOLACTONE
     Indication: FLUID RETENTION
     Dosage: 25 MG, QD
     Route: 048
     Dates: end: 20160626
  9. MONILAC [Concomitant]
     Active Substance: LACTULOSE
     Indication: PROPHYLAXIS
     Dosage: 60 ML, QD
     Route: 048
     Dates: end: 20160626
  10. TOLVAPTAN [Suspect]
     Active Substance: TOLVAPTAN
     Indication: FLUID RETENTION
     Dosage: 7.5 MG, QD, EVERY MORNING
     Route: 048
     Dates: start: 20160308, end: 20160626
  11. LASIX [Suspect]
     Active Substance: FUROSEMIDE
     Indication: FLUID RETENTION
     Dosage: 40 MG, QD
     Route: 042
     Dates: start: 20160627, end: 20160629
  12. AMINOLEBAN [Concomitant]
     Active Substance: AMINO ACIDS
     Indication: PROPHYLAXIS
     Dosage: 150 G, QD
     Route: 048
     Dates: end: 20160626

REACTIONS (6)
  - Red blood cell count decreased [Unknown]
  - Renal impairment [Fatal]
  - Haemoglobin decreased [Unknown]
  - Lymphocyte count decreased [Unknown]
  - Blood urea increased [Unknown]
  - Pneumonia [Fatal]

NARRATIVE: CASE EVENT DATE: 20160323
